FAERS Safety Report 9396259 (Version 3)
Quarter: 2013Q3

REPORT INFORMATION
  Report Type: Spontaneous
  Country: US (occurrence: US)
  Receive Date: 20130711
  Receipt Date: 20130820
  Transmission Date: 20140515
  Serious: No
  Sender: FDA-Public Use
  Company Number: US-VERTEX PHARMACEUTICALS INC-2013-007849

PATIENT
  Age: 59 Year
  Sex: Male
  Weight: 72.11 kg

DRUGS (7)
  1. INCIVEK [Suspect]
     Indication: HEPATITIS C
     Dosage: 750 MG, TID
     Route: 048
     Dates: start: 20130706
  2. RIBAVIRIN [Suspect]
     Indication: HEPATITIS C
     Dosage: 600 MG, BID
     Route: 048
     Dates: start: 20130706
  3. RIBAVIRIN [Suspect]
     Dosage: 600 MG, QD
     Route: 048
  4. PEGASYS [Suspect]
     Indication: HEPATITIS C
     Dosage: 180 ?G, QW
     Route: 058
     Dates: start: 20130705
  5. ZOFRAN [Concomitant]
     Indication: NAUSEA
  6. ZINC OXIDE [Concomitant]
  7. HYDROCORTISONE [Concomitant]

REACTIONS (15)
  - Panic attack [Not Recovered/Not Resolved]
  - Pyrexia [Not Recovered/Not Resolved]
  - Bone pain [Not Recovered/Not Resolved]
  - Pain [Not Recovered/Not Resolved]
  - Burning sensation [Not Recovered/Not Resolved]
  - Eye irritation [Not Recovered/Not Resolved]
  - Lethargy [Not Recovered/Not Resolved]
  - Asthenia [Not Recovered/Not Resolved]
  - Haemorrhoids [Not Recovered/Not Resolved]
  - Haemorrhoidal haemorrhage [Not Recovered/Not Resolved]
  - Anorectal discomfort [Not Recovered/Not Resolved]
  - Diarrhoea [Not Recovered/Not Resolved]
  - Vomiting [Not Recovered/Not Resolved]
  - Anal pruritus [Not Recovered/Not Resolved]
  - Nausea [Not Recovered/Not Resolved]
